FAERS Safety Report 5246833-3 (Version None)
Quarter: 2007Q1

REPORT INFORMATION
  Report Type: 
  Country: None (occurrence: None)
  Receive Date: 20070226
  Receipt Date: 20061114
  Transmission Date: 20070707
  Serious: Yes (Other)
  Sender: FDA-Public Use
  Company Number: AU-PFIZER INC-2007013621

PATIENT
  Sex: Female

DRUGS (2)
  1. SILDENAFIL (PAH) [Suspect]
     Indication: COR PULMONALE
  2. SILDENAFIL (PAH) [Suspect]
     Indication: CHRONIC OBSTRUCTIVE PULMONARY DISEASE

REACTIONS (1)
  - CEREBRAL INFARCTION [None]
